FAERS Safety Report 9516879 (Version 2)
Quarter: 2014Q2

REPORT INFORMATION
  Report Type: Spontaneous
  Country: IT (occurrence: IT)
  Receive Date: 20130911
  Receipt Date: 20140421
  Transmission Date: 20141212
  Serious: Yes (Hospitalization, Other)
  Sender: FDA-Public Use
  Company Number: IT-BRISTOL-MYERS SQUIBB COMPANY-19222777

PATIENT
  Age: 84 Year
  Sex: Male

DRUGS (4)
  1. COUMADIN TABS 5 MG [Suspect]
     Indication: ATRIAL FIBRILLATION
     Dosage: 1DF:1 UNIT
     Route: 048
     Dates: start: 20130101, end: 20130717
  2. KARVEZIDE TABS 150MG/12.5MG [Suspect]
     Indication: HYPERTENSION
     Dosage: 1 DF-0.5 UNIT /TOTAL
     Route: 048
     Dates: start: 20130101, end: 20130717
  3. LOPRESSOR [Concomitant]
     Dosage: LOPRESOR ^100 MG TABS^ DOSAGE/25MG/ORALLY
     Route: 048
  4. XATRAL [Concomitant]
     Dosage: XATRAL ^10 MG TABS^ DOSAGE/10MG/ORALLY.
     Route: 048

REACTIONS (4)
  - Presyncope [Recovering/Resolving]
  - Hypotension [Recovering/Resolving]
  - International normalised ratio increased [Recovering/Resolving]
  - Spontaneous haematoma [Recovering/Resolving]
